FAERS Safety Report 23857715 (Version 1)
Quarter: 2024Q2

REPORT INFORMATION
  Report Type: Other
  Country: US (occurrence: US)
  Receive Date: 20240515
  Receipt Date: 20240515
  Transmission Date: 20240716
  Serious: No
  Sender: FDA-Public Use
  Company Number: US-Kiniksa Pharmaceuticals Ltd.-2023KPU001003

PATIENT
  Age: 53 Year
  Sex: Female

DRUGS (2)
  1. ARCALYST [Suspect]
     Active Substance: RILONACEPT
     Indication: Pericarditis
     Route: 058
     Dates: start: 20231005, end: 20231005
  2. ARCALYST [Suspect]
     Active Substance: RILONACEPT
     Route: 058
     Dates: start: 20231012

REACTIONS (16)
  - Upper respiratory tract infection [Unknown]
  - Oropharyngeal pain [Recovered/Resolved]
  - Pyrexia [Recovered/Resolved]
  - Fatigue [Unknown]
  - Dysphonia [Unknown]
  - Nasal congestion [Recovered/Resolved]
  - Sputum discoloured [Recovered/Resolved]
  - Product dose omission issue [Unknown]
  - Malaise [Recovered/Resolved]
  - Injection site pain [Recovered/Resolved]
  - Injection site erythema [Recovered/Resolved]
  - Injection site swelling [Recovered/Resolved]
  - Injection site warmth [Recovered/Resolved]
  - Chest pain [Recovered/Resolved]
  - Urticaria [Unknown]
  - Injection site rash [Unknown]

NARRATIVE: CASE EVENT DATE: 20231015
